FAERS Safety Report 11774495 (Version 2)
Quarter: 2015Q4

REPORT INFORMATION
  Report Type: Report from Study
  Country: US (occurrence: US)
  Receive Date: 20151124
  Receipt Date: 20151202
  Transmission Date: 20160304
  Serious: No
  Sender: FDA-Public Use
  Company Number: PHEH2015US024489

PATIENT
  Sex: Female
  Weight: 57.14 kg

DRUGS (1)
  1. GILENYA [Suspect]
     Active Substance: FINGOLIMOD HYDROCHLORIDE
     Indication: MULTIPLE SCLEROSIS
     Dosage: 0.5 MG, QD
     Route: 048

REACTIONS (5)
  - Joint injury [Unknown]
  - Limb injury [Unknown]
  - Fall [Unknown]
  - Pain [Unknown]
  - Joint swelling [Recovering/Resolving]
